FAERS Safety Report 6807421-8 (Version None)
Quarter: 2010Q2

REPORT INFORMATION
  Report Type: 
  Country: None (occurrence: None)
  Receive Date: 20100629
  Receipt Date: 20080924
  Transmission Date: 20101027
  Serious: Yes (Hospitalization)
  Sender: FDA-Public Use
  Company Number: US-PFIZER INC-2008068463

PATIENT
  Sex: Female

DRUGS (7)
  1. CLEOCIN PHOSPHATE [Suspect]
     Indication: TOOTH ABSCESS
     Dosage: Q8H:EVERY DAY
     Route: 042
     Dates: start: 20080813, end: 20080818
  2. CLEOCIN PEDIATRIC [Suspect]
     Indication: TOOTH ABSCESS
  3. CLEOCIN HYDROCHLORIDE [Suspect]
  4. ACETAMINOPHEN [Concomitant]
     Route: 048
     Dates: start: 20080813, end: 20080818
  5. BENADRYL [Concomitant]
     Route: 048
     Dates: start: 20080813, end: 20080818
  6. MOTRIN [Concomitant]
     Route: 048
     Dates: start: 20080813, end: 20080818
  7. BENZOCAINE [Concomitant]
     Route: 061
     Dates: start: 20080813, end: 20080818

REACTIONS (2)
  - DRUG INTOLERANCE [None]
  - VOMITING [None]
